FAERS Safety Report 7538345-9 (Version None)
Quarter: 2011Q2

REPORT INFORMATION
  Report Type: 
  Country: None (occurrence: None)
  Receive Date: 20110609
  Receipt Date: 20110602
  Transmission Date: 20111010
  Serious: Yes (Other)
  Sender: FDA-Public Use
  Company Number: US-US-EMD SERONO, INC.-7049398

PATIENT
  Sex: Female

DRUGS (1)
  1. REBIF [Suspect]
     Indication: MULTIPLE SCLEROSIS
     Route: 058
     Dates: start: 20090618

REACTIONS (5)
  - HEADACHE [None]
  - HYPERTENSION [None]
  - EXTRASYSTOLES [None]
  - VENTRICULAR EXTRASYSTOLES [None]
  - INFLUENZA LIKE ILLNESS [None]
